FAERS Safety Report 22182393 (Version 1)
Quarter: 2023Q2

REPORT INFORMATION
  Report Type: Spontaneous
  Country: US (occurrence: None)
  Receive Date: 20230406
  Receipt Date: 20230406
  Transmission Date: 20230721
  Serious: No
  Sender: FDA-Public Use
  Company Number: 2023A075324

PATIENT

DRUGS (3)
  1. FASLODEX [Suspect]
     Active Substance: FULVESTRANT
     Route: 030
  2. IBRANCE [Suspect]
     Active Substance: PALBOCICLIB
     Route: 048
  3. ANASTROZOLE [Suspect]
     Active Substance: ANASTROZOLE

REACTIONS (5)
  - Limb mass [Unknown]
  - Joint swelling [Unknown]
  - Insomnia [Unknown]
  - Decreased appetite [Unknown]
  - Arthralgia [Unknown]
